FAERS Safety Report 24788408 (Version 2)
Quarter: 2025Q1

REPORT INFORMATION
  Report Type: Spontaneous
  Country: RS (occurrence: RS)
  Receive Date: 20241230
  Receipt Date: 20250221
  Transmission Date: 20250408
  Serious: Yes (Other)
  Sender: ROCHE
  Company Number: RS-ROCHE-10000167453

PATIENT
  Sex: Female

DRUGS (3)
  1. BEVACIZUMAB [Suspect]
     Active Substance: BEVACIZUMAB
     Indication: Ovarian cancer
     Dosage: DOSE : 7.5 MG/KG
     Route: 040
     Dates: start: 202110, end: 202201
  2. TAXOL [Suspect]
     Active Substance: PACLITAXEL
     Indication: Ovarian cancer
     Route: 040
     Dates: start: 202110, end: 202201
  3. CARBOPLATIN [Suspect]
     Active Substance: CARBOPLATIN
     Indication: Ovarian cancer
     Route: 040
     Dates: start: 202110, end: 202201

REACTIONS (3)
  - Peripheral sensory neuropathy [Unknown]
  - Neutropenia [Unknown]
  - Fatigue [Unknown]
